FAERS Safety Report 5976856-8 (Version None)
Quarter: 2008Q4

REPORT INFORMATION
  Report Type: 
  Country: None (occurrence: None)
  Receive Date: 20081203
  Receipt Date: 20080213
  Transmission Date: 20090506
  Serious: No
  Sender: FDA-Public Use
  Company Number: US-AMGEN-KDL265384

PATIENT
  Sex: Male

DRUGS (2)
  1. ENBREL [Suspect]
     Indication: RHEUMATOID ARTHRITIS
     Route: 058
     Dates: start: 20040801
  2. SULFASALAZINE [Concomitant]
     Route: 048
     Dates: start: 20050101

REACTIONS (3)
  - BACK PAIN [None]
  - NODULE ON EXTREMITY [None]
  - PAIN IN EXTREMITY [None]
